FAERS Safety Report 8035568-X (Version None)
Quarter: 2012Q1

REPORT INFORMATION
  Report Type: 
  Country: None (occurrence: None)
  Receive Date: 20120110
  Receipt Date: 20120110
  Transmission Date: 20120608
  Serious: Yes (Other)
  Sender: FDA-Public Use
  Company Number: None

PATIENT
  Age: 69 Year
  Sex: Female
  Weight: 72.5755 kg

DRUGS (1)
  1. CRESTOR [Suspect]
     Indication: BLOOD CHOLESTEROL
     Dosage: 1 TABLET 1 X DAILY
     Dates: start: 20111207, end: 20111211

REACTIONS (5)
  - GAIT DISTURBANCE [None]
  - PAIN [None]
  - MUSCLE SPASMS [None]
  - MUSCLE TIGHTNESS [None]
  - MOVEMENT DISORDER [None]
